FAERS Safety Report 5278883-5 (Version None)
Quarter: 2007Q1

REPORT INFORMATION
  Report Type: 
  Country: None (occurrence: None)
  Receive Date: 20070328
  Receipt Date: 20070323
  Transmission Date: 20070707
  Serious: Yes (Hospitalization, Other)
  Sender: FDA-Public Use
  Company Number: US-JNJFOC-20060601388

PATIENT
  Sex: Female
  Weight: 77.11 kg

DRUGS (4)
  1. ORTHO EVRA [Suspect]
     Indication: DRUG USE FOR UNKNOWN INDICATION
     Route: 062
     Dates: start: 20030912
  2. ALLEGRA [Concomitant]
     Indication: MULTIPLE ALLERGIES
  3. ALBUTEROL [Concomitant]
     Indication: ASTHMA
  4. ZOLOFT [Concomitant]
     Indication: DRUG USE FOR UNKNOWN INDICATION

REACTIONS (3)
  - CHOLELITHIASIS [None]
  - PANCREATITIS [None]
  - THROMBOSIS [None]
